FAERS Safety Report 11615464 (Version 1)
Quarter: 2015Q4

REPORT INFORMATION
  Report Type: Spontaneous
  Country: US (occurrence: US)
  Receive Date: 20151009
  Receipt Date: 20151009
  Transmission Date: 20160304
  Serious: No
  Sender: FDA-Public Use
  Company Number: US-ABBVIE-15P-163-1453366-00

PATIENT
  Age: 81 Year
  Sex: Male

DRUGS (1)
  1. DUOPA [Suspect]
     Active Substance: CARBIDOPA\LEVODOPA
     Indication: PARKINSON^S DISEASE
     Dosage: PREV ON STUDY
     Route: 050
     Dates: start: 2012

REACTIONS (6)
  - Device occlusion [Recovered/Resolved]
  - Stoma site discharge [Recovered/Resolved]
  - Device issue [Unknown]
  - Product physical issue [Unknown]
  - Device dislocation [Unknown]
  - Incorrect dose administered [Unknown]

NARRATIVE: CASE EVENT DATE: 201508
